FAERS Safety Report 20037213 (Version 2)
Quarter: 2021Q4

REPORT INFORMATION
  Report Type: Other
  Country: US (occurrence: None)
  Receive Date: 20211105
  Receipt Date: 20211221
  Transmission Date: 20220303
  Serious: Yes (Other)
  Sender: FDA-Public Use
  Company Number: US-ROCHE-2946976

PATIENT
  Sex: Male

DRUGS (1)
  1. OCREVUS [Suspect]
     Active Substance: OCRELIZUMAB
     Indication: Relapsing-remitting multiple sclerosis
     Dosage: ONGOING YES
     Route: 065
     Dates: start: 20210915

REACTIONS (2)
  - Osteomyelitis [Not Recovered/Not Resolved]
  - Coccydynia [Not Recovered/Not Resolved]
